FAERS Safety Report 4801166-1 (Version None)
Quarter: 2005Q4

REPORT INFORMATION
  Report Type: 
  Country: None (occurrence: None)
  Receive Date: 20051011
  Receipt Date: 20040907
  Transmission Date: 20060501
  Serious: Yes (Other)
  Sender: FDA-Public Use
  Company Number: CHNY2004AU02868

PATIENT
  Age: 62 Year
  Sex: Female

DRUGS (1)
  1. NICOTINE [Suspect]
     Dosage: 21 MG, QD, TRANSDERMAL
     Route: 062
     Dates: start: 20030924, end: 20030929

REACTIONS (3)
  - APPLICATION SITE PAIN [None]
  - PAIN IN EXTREMITY [None]
  - REPETITIVE STRAIN INJURY [None]
